FAERS Safety Report 5919508-2 (Version None)
Quarter: 2008Q4

REPORT INFORMATION
  Report Type: 
  Country: None (occurrence: None)
  Receive Date: 20081015
  Receipt Date: 20081006
  Transmission Date: 20090506
  Serious: Yes (Hospitalization)
  Sender: FDA-Public Use
  Company Number: NL-SANOFI-SYNTHELABO-F01200801548

PATIENT
  Sex: Male

DRUGS (7)
  1. FENTANYL [Concomitant]
     Dosage: UNK
  2. OXYNORM [Concomitant]
     Dosage: UNK
  3. NAPROXEN [Concomitant]
     Dosage: UNK
  4. ACETAMINOPHEN [Concomitant]
     Dosage: UNK
  5. AVASTIN [Suspect]
     Dosage: DAY 1, Q3W
     Route: 041
     Dates: start: 20080716, end: 20080716
  6. XELODA [Suspect]
     Dosage: BID, DAY 1-14, Q3W
     Route: 048
     Dates: start: 20080716
  7. ELOXATIN [Suspect]
     Indication: COLORECTAL CANCER
     Dosage: DAY 1, Q3W
     Route: 041
     Dates: start: 20080716, end: 20080716

REACTIONS (3)
  - PLEURAL EFFUSION [None]
  - PNEUMONITIS [None]
  - SEPSIS [None]
